FAERS Safety Report 13969282 (Version 5)
Quarter: 2018Q3

REPORT INFORMATION
  Report Type: Spontaneous
  Country: FR (occurrence: FR)
  Receive Date: 20170914
  Receipt Date: 20180717
  Transmission Date: 20181010
  Serious: Yes (Hospitalization)
  Sender: FDA-Public Use
  Company Number: FR-CELGENEUS-FRA-20170506529

PATIENT
  Age: 79 Year
  Sex: Male
  Weight: 64 kg

DRUGS (40)
  1. REVLIMID [Suspect]
     Active Substance: LENALIDOMIDE
     Dosage: 25 MILLIGRAM
     Route: 048
  2. TRAMADOL. [Concomitant]
     Active Substance: TRAMADOL
     Dosage: 200 MILLIGRAM
     Route: 048
  3. BRICANYL [Concomitant]
     Active Substance: TERBUTALINE SULFATE
     Indication: PNEUMONIA ASPIRATION
     Route: 055
     Dates: start: 20170505, end: 201710
  4. MACROGOL [Concomitant]
     Active Substance: POLYETHYLENE GLYCOLS
     Indication: CONSTIPATION PROPHYLAXIS
     Route: 065
  5. OXYGEN. [Concomitant]
     Active Substance: OXYGEN
     Indication: PNEUMONIA ASPIRATION
  6. ZYLORIC [Concomitant]
     Active Substance: ALLOPURINOL
     Dosage: 200 MILLIGRAM
     Route: 048
     Dates: start: 20160519
  7. COAPROVEL [Concomitant]
     Active Substance: HYDROCHLOROTHIAZIDE\IRBESARTAN
     Indication: HYPERTENSION
     Route: 048
  8. ASPIRIN. [Concomitant]
     Active Substance: ASPIRIN
     Indication: PRODUCT USED FOR UNKNOWN INDICATION
     Route: 065
  9. ATROVENT [Concomitant]
     Active Substance: IPRATROPIUM BROMIDE
     Indication: PNEUMONIA ASPIRATION
     Route: 055
     Dates: start: 20170505, end: 201710
  10. OXYGEN. [Concomitant]
     Active Substance: OXYGEN
     Indication: WHEEZING
  11. AUGMENTIN [Concomitant]
     Active Substance: AMOXICILLIN\CLAVULANATE POTASSIUM
     Indication: ANTIBIOTIC THERAPY
     Dosage: 3 GRAM
     Route: 065
     Dates: start: 20170506, end: 20170520
  12. ZYLORIC [Concomitant]
     Active Substance: ALLOPURINOL
     Indication: HYPERURICAEMIA
     Dosage: 300 MILLIGRAM
     Route: 048
     Dates: start: 20160919
  13. OXYGEN. [Concomitant]
     Active Substance: OXYGEN
     Indication: DYSPNOEA
     Route: 065
  14. OXYGEN. [Concomitant]
     Active Substance: OXYGEN
     Indication: COUGH
  15. ATORVASTATIN [Concomitant]
     Active Substance: ATORVASTATIN
     Indication: PRODUCT USED FOR UNKNOWN INDICATION
     Route: 065
  16. OXYGEN. [Concomitant]
     Active Substance: OXYGEN
     Indication: DYSPNOEA
     Route: 065
     Dates: start: 20170505, end: 20170520
  17. OXYGEN. [Concomitant]
     Active Substance: OXYGEN
     Indication: RHONCHI
  18. TAHOR [Concomitant]
     Active Substance: ATORVASTATIN CALCIUM
     Indication: STENOSIS
     Dosage: 40 MILLIGRAM
     Route: 048
     Dates: start: 20170505, end: 20170511
  19. REVLIMID [Suspect]
     Active Substance: LENALIDOMIDE
     Indication: PLASMA CELL MYELOMA
     Dosage: 25 MILLIGRAM
     Route: 048
     Dates: start: 20160407, end: 20170313
  20. DEXAMETHASONE. [Suspect]
     Active Substance: DEXAMETHASONE
     Dosage: 2.6667 MILLIGRAM
     Route: 048
  21. IRBESARTAN. [Concomitant]
     Active Substance: IRBESARTAN
     Indication: HYPERTENSION
     Dosage: 300 MILLIGRAM
     Route: 048
     Dates: start: 20170410
  22. MONTELUKAST [Concomitant]
     Active Substance: MONTELUKAST SODIUM
     Indication: BRONCHIOLITIS
     Dosage: 10 MILLIGRAM
     Route: 048
     Dates: start: 20161122
  23. CALCIUM [Concomitant]
     Active Substance: CALCIUM
     Indication: HYPOCALCAEMIA
     Dosage: 500 MILLIGRAM
     Route: 048
     Dates: start: 20160503
  24. TRAMADOL. [Concomitant]
     Active Substance: TRAMADOL
     Indication: BACK PAIN
     Dosage: 50 MILLIGRAM
     Route: 048
  25. ATROVENT [Concomitant]
     Active Substance: IPRATROPIUM BROMIDE
     Indication: CHRONIC OBSTRUCTIVE PULMONARY DISEASE
  26. INEXIUM [Concomitant]
     Active Substance: ESOMEPRAZOLE
     Indication: PROPHYLAXIS
     Dosage: 40 MILLIGRAM
     Route: 048
     Dates: start: 20170511
  27. DEXAMETHASONE. [Suspect]
     Active Substance: DEXAMETHASONE
     Indication: PLASMA CELL MYELOMA
     Dosage: 20 MILLIGRAM
     Route: 048
     Dates: start: 20160407, end: 20170410
  28. INNOVAIR [Concomitant]
     Active Substance: BECLOMETHASONE DIPROPIONATE\FORMOTEROL
     Indication: BRONCHIOLITIS
     Dosage: 20 MILLIGRAM
     Route: 055
     Dates: start: 20161115
  29. DOLIPRANE [Concomitant]
     Active Substance: ACETAMINOPHEN
     Indication: BACK PAIN
     Dosage: 1 GRAM
     Route: 048
  30. CRESTOR [Concomitant]
     Active Substance: ROSUVASTATIN CALCIUM
     Indication: HYPERTENSION
     Dosage: 5 MILLIGRAM
     Route: 048
  31. KARDEGIC [Concomitant]
     Active Substance: ASPIRIN DL-LYSINE
     Indication: STENOSIS
     Dosage: 160 MILLIGRAM
     Route: 048
     Dates: start: 20170506
  32. ZELITREX [Concomitant]
     Active Substance: VALACYCLOVIR HYDROCHLORIDE
     Indication: INFECTION PROPHYLAXIS
     Dosage: 1000 MILLIGRAM
     Route: 048
     Dates: start: 20160407
  33. BRICANYL [Concomitant]
     Active Substance: TERBUTALINE SULFATE
     Indication: CHRONIC OBSTRUCTIVE PULMONARY DISEASE
  34. RACECADOTRIL [Concomitant]
     Active Substance: RACECADOTRIL
     Indication: ANTIDIARRHOEAL SUPPORTIVE CARE
     Dosage: 100 MILLIGRAM
     Route: 048
     Dates: start: 20161122
  35. KARDEGIC [Concomitant]
     Active Substance: ASPIRIN DL-LYSINE
     Indication: THROMBOSIS PROPHYLAXIS
     Dosage: 75 MILLIGRAM
     Route: 048
     Dates: start: 20160502
  36. BACTRIM [Concomitant]
     Active Substance: SULFAMETHOXAZOLE\TRIMETHOPRIM
     Indication: INFECTION PROPHYLAXIS
     Route: 048
     Dates: start: 20160407
  37. DENOSUMAB [Concomitant]
     Active Substance: DENOSUMAB
     Indication: OSTEOPOROSIS
     Route: 058
  38. ASPEGIC [Concomitant]
     Active Substance: ASPIRIN DL-LYSINE
     Indication: STENOSIS
     Route: 041
     Dates: start: 20170505
  39. AUGMENTIN [Concomitant]
     Active Substance: AMOXICILLIN\CLAVULANATE POTASSIUM
     Indication: PNEUMONIA ASPIRATION
  40. ACTISKENAN [Concomitant]
     Active Substance: MORPHINE SULFATE
     Indication: JOINT DISLOCATION
     Route: 048
     Dates: start: 20170511, end: 201707

REACTIONS (1)
  - Generalised tonic-clonic seizure [Recovered/Resolved with Sequelae]

NARRATIVE: CASE EVENT DATE: 20170505
